FAERS Safety Report 9700547 (Version 1)
Quarter: 2013Q4

REPORT INFORMATION
  Report Type: Spontaneous
  Country: US (occurrence: US)
  Receive Date: 20131121
  Receipt Date: 20131121
  Transmission Date: 20140711
  Serious: Yes (Congenital Anomaly)
  Sender: FDA-Public Use
  Company Number: PHHY2013US131461

PATIENT
  Sex: 0

DRUGS (3)
  1. MYCOPHENOLIC ACID [Suspect]
     Dosage: FOETAL DRUG EXPOSURE VIA FATHER
     Route: 065
  2. TACROLIMUS [Suspect]
     Dosage: FOETAL DRUG EXPOSURE VIA FATHER
     Route: 065
  3. PREDNISONE [Suspect]
     Dosage: FOETAL DRUG EXPOSURE VIA FATHER
     Route: 065

REACTIONS (2)
  - Congenital diaphragmatic hernia [Unknown]
  - Exposure via father [Unknown]
